FAERS Safety Report 19282306 (Version 1)
Quarter: 2021Q2

REPORT INFORMATION
  Report Type: Other
  Country: CN (occurrence: CN)
  Receive Date: 20210521
  Receipt Date: 20210521
  Transmission Date: 20210717
  Serious: Yes (Other)
  Sender: FDA-Public Use
  Company Number: CN-ROCHE-2829521

PATIENT

DRUGS (3)
  1. BEVACIZUMAB. [Suspect]
     Active Substance: BEVACIZUMAB
     Indication: RECTAL CANCER
     Dosage: ON FIRST DAY; TOTAL 4 CYCLE OF TREATMENT WAS CARRIED OUT.
     Route: 042
  2. CAPECITABINE. [Suspect]
     Active Substance: CAPECITABINE
     Indication: RECTAL CANCER
     Dosage: DIVIDED INTO TWO ORAL DOSES FOR 14 DAYS
     Route: 048
  3. OXALIPLATIN. [Suspect]
     Active Substance: OXALIPLATIN
     Indication: RECTAL CANCER
     Dosage: ON FIRST DAY, TOTAL OF 4 TREATMENT CYCLES WERE CARRIED OUT
     Route: 042

REACTIONS (11)
  - Myelosuppression [Unknown]
  - Haemorrhage [Unknown]
  - Hepatic function abnormal [Unknown]
  - Nausea [Unknown]
  - Vomiting [Unknown]
  - Rash [Unknown]
  - Impaired healing [Unknown]
  - Venous thrombosis [Unknown]
  - Anastomotic leak [Unknown]
  - Neuropathy peripheral [Unknown]
  - Constipation [Unknown]
